FAERS Safety Report 10557074 (Version 1)
Quarter: 2014Q4

REPORT INFORMATION
  Report Type: Spontaneous
  Country: US (occurrence: None)
  Receive Date: 20141029
  Receipt Date: 20141029
  Transmission Date: 20150529
  Serious: Yes (Other)
  Sender: FDA-Public Use
  Company Number: None

PATIENT
  Age: 37 Year
  Sex: Male
  Weight: 104.33 kg

DRUGS (1)
  1. AUGMENTIN [Suspect]
     Active Substance: AMOXICILLIN\CLAVULANATE POTASSIUM
     Indication: SINUSITIS
     Route: 048
     Dates: start: 20140304, end: 20140307

REACTIONS (4)
  - Muscle spasms [None]
  - Testicular swelling [None]
  - Dry mouth [None]
  - Paraesthesia [None]

NARRATIVE: CASE EVENT DATE: 20140303
